FAERS Safety Report 7400274-9 (Version None)
Quarter: 2011Q2

REPORT INFORMATION
  Report Type: 
  Country: None (occurrence: None)
  Receive Date: 20110405
  Receipt Date: 20110405
  Transmission Date: 20111010
  Serious: Yes (Other)
  Sender: FDA-Public Use
  Company Number: None

PATIENT
  Sex: Female
  Weight: 58.9676 kg

DRUGS (1)
  1. CIPROFLOXACIN HCL [Suspect]
     Indication: URINARY TRACT INFECTION
     Dosage: 1 TABLET TWICE A DAY PO
     Route: 048
     Dates: start: 20110321, end: 20110322

REACTIONS (1)
  - ARTHRALGIA [None]
